FAERS Safety Report 25034681 (Version 1)
Quarter: 2025Q1

REPORT INFORMATION
  Report Type: Spontaneous
  Country: US (occurrence: US)
  Receive Date: 20250304
  Receipt Date: 20250304
  Transmission Date: 20250409
  Serious: Yes (Other)
  Sender: DR REDDYS
  Company Number: None

PATIENT
  Age: 62 Year
  Sex: Male

DRUGS (18)
  1. GEMCITABINE [Suspect]
     Active Substance: GEMCITABINE
     Indication: Pancreatic carcinoma metastatic
     Route: 042
     Dates: end: 202004
  2. GEMCITABINE [Suspect]
     Active Substance: GEMCITABINE
     Indication: Disease progression
     Route: 042
     Dates: start: 20200414, end: 20200622
  3. GEMCITABINE [Suspect]
     Active Substance: GEMCITABINE
     Indication: Metastases to liver
     Route: 042
     Dates: start: 20200714, end: 202008
  4. CYCLOPHOSPHAMIDE [Suspect]
     Active Substance: CYCLOPHOSPHAMIDE
     Indication: Pancreatic carcinoma metastatic
     Route: 048
     Dates: end: 20200512
  5. CYCLOPHOSPHAMIDE [Suspect]
     Active Substance: CYCLOPHOSPHAMIDE
     Indication: Disease progression
  6. CYCLOPHOSPHAMIDE [Suspect]
     Active Substance: CYCLOPHOSPHAMIDE
     Indication: Metastases to liver
  7. ABRAXANE [Suspect]
     Active Substance: PACLITAXEL
     Indication: Pancreatic carcinoma metastatic
     Route: 042
     Dates: end: 202004
  8. ABRAXANE [Suspect]
     Active Substance: PACLITAXEL
     Indication: Disease progression
     Route: 042
     Dates: start: 20200414, end: 20200622
  9. ABRAXANE [Suspect]
     Active Substance: PACLITAXEL
     Indication: Metastases to liver
     Route: 042
     Dates: start: 20200721, end: 202008
  10. ANKTIVA [Suspect]
     Active Substance: NOGAPENDEKIN ALFA INBAKICEPT-PMLN
     Indication: Pancreatic carcinoma metastatic
     Route: 058
     Dates: end: 20200909
  11. ANKTIVA [Suspect]
     Active Substance: NOGAPENDEKIN ALFA INBAKICEPT-PMLN
     Indication: Disease progression
  12. ANKTIVA [Suspect]
     Active Substance: NOGAPENDEKIN ALFA INBAKICEPT-PMLN
     Indication: Metastases to liver
  13. ALDOXORUBICIN [Suspect]
     Active Substance: ALDOXORUBICIN
     Indication: Pancreatic carcinoma metastatic
     Dates: end: 20200619
  14. ALDOXORUBICIN [Suspect]
     Active Substance: ALDOXORUBICIN
     Indication: Disease progression
  15. ALDOXORUBICIN [Suspect]
     Active Substance: ALDOXORUBICIN
     Indication: Metastases to liver
  16. CISPLATIN [Suspect]
     Active Substance: CISPLATIN
     Indication: Pancreatic carcinoma metastatic
     Dates: end: 20200721
  17. CISPLATIN [Suspect]
     Active Substance: CISPLATIN
     Indication: Disease progression
  18. CISPLATIN [Suspect]
     Active Substance: CISPLATIN
     Indication: Metastases to liver

REACTIONS (4)
  - Neutropenia [Unknown]
  - Pyrexia [Unknown]
  - Chills [Unknown]
  - Nausea [Unknown]

NARRATIVE: CASE EVENT DATE: 20200101
